FAERS Safety Report 9385140 (Version 4)
Quarter: 2013Q3

REPORT INFORMATION
  Report Type: Report from Study
  Country: US (occurrence: US)
  Receive Date: 20130705
  Receipt Date: 20130821
  Transmission Date: 20140515
  Serious: Yes (Hospitalization)
  Sender: FDA-Public Use
  Company Number: US-ABBOTT-13P-163-1111974-00

PATIENT
  Age: 28 Year
  Sex: Female
  Weight: 58.57 kg

DRUGS (8)
  1. HUMIRA [Suspect]
     Indication: CROHN^S DISEASE
     Route: 058
     Dates: start: 20130528, end: 20130528
  2. HUMIRA [Suspect]
     Dates: start: 20130611, end: 20130611
  3. HUMIRA [Suspect]
     Dates: end: 20130611
  4. PENTASA [Concomitant]
     Indication: CROHN^S DISEASE
     Route: 048
     Dates: start: 201212
  5. IMURAN [Concomitant]
     Indication: PRODUCT USED FOR UNKNOWN INDICATION
     Route: 048
     Dates: start: 201303
  6. BIOTIN [Concomitant]
     Indication: PRODUCT USED FOR UNKNOWN INDICATION
  7. MULTIVITAMIN [Concomitant]
     Indication: PRODUCT USED FOR UNKNOWN INDICATION
  8. PREDNISONE [Concomitant]
     Indication: CROHN^S DISEASE
     Route: 048

REACTIONS (3)
  - Small intestinal obstruction [Recovered/Resolved]
  - Intestinal mass [Recovered/Resolved]
  - Abscess intestinal [Recovered/Resolved]
